FAERS Safety Report 24720053 (Version 2)
Quarter: 2024Q4

REPORT INFORMATION
  Report Type: Spontaneous
  Country: US (occurrence: US)
  Receive Date: 20241211
  Receipt Date: 20241224
  Transmission Date: 20250114
  Serious: Yes (Other)
  Sender: CORIUM
  Company Number: US-MIMS-CORIMC-5927

PATIENT

DRUGS (1)
  1. AZSTARYS [Suspect]
     Active Substance: DEXMETHYLPHENIDATE HYDROCHLORIDE\SERDEXMETHYLPHENIDATE CHLORIDE
     Indication: Attention deficit hyperactivity disorder
     Dosage: 26.1 MG/5.2 MG
     Route: 065

REACTIONS (6)
  - Suicidal ideation [None]
  - Brain fog [None]
  - Depression [None]
  - Apathy [None]
  - Anxiety [None]
  - Off label use [Unknown]
